FAERS Safety Report 11482307 (Version 2)
Quarter: 2015Q3

REPORT INFORMATION
  Report Type: Spontaneous
  Country: US (occurrence: US)
  Receive Date: 20150903
  Receipt Date: 20150903
  Transmission Date: 20151125
  Serious: No
  Sender: FDA-Public Use
  Company Number: US-ELI_LILLY_AND_COMPANY-US201204002373

PATIENT
  Age: 51 Year
  Sex: Male

DRUGS (2)
  1. CYMBALTA [Suspect]
     Active Substance: DULOXETINE HYDROCHLORIDE
     Indication: DEPRESSION
     Dosage: 60 MG, UNK
  2. FLUOXETINE [Concomitant]
     Active Substance: FLUOXETINE\FLUOXETINE HYDROCHLORIDE

REACTIONS (5)
  - Muscular weakness [Unknown]
  - Nerve block [Recovered/Resolved]
  - Fall [Recovered/Resolved]
  - Memory impairment [Unknown]
  - Tremor [Unknown]

NARRATIVE: CASE EVENT DATE: 20120403
